FAERS Safety Report 20327469 (Version 2)
Quarter: 2022Q1

REPORT INFORMATION
  Report Type: Spontaneous
  Country: FR (occurrence: FR)
  Receive Date: 20220112
  Receipt Date: 20220215
  Transmission Date: 20220423
  Serious: Yes (Other)
  Sender: FDA-Public Use
  Company Number: FR-KOREA IPSEN Pharma-2022-00600

PATIENT
  Age: 50 Year
  Sex: Female

DRUGS (1)
  1. DYSPORT [Suspect]
     Active Substance: ABOBOTULINUMTOXINA
     Indication: Muscle spasticity
     Dosage: DOSE NOT REPORTED
     Route: 051
     Dates: start: 20201217, end: 20201217

REACTIONS (3)
  - Anaphylactic shock [Recovered/Resolved]
  - Condition aggravated [Recovered/Resolved]
  - Mutism [Recovered/Resolved]
